FAERS Safety Report 24015040 (Version 1)
Quarter: 2024Q2

REPORT INFORMATION
  Report Type: Spontaneous
  Country: CN (occurrence: CN)
  Receive Date: 20240626
  Receipt Date: 20240626
  Transmission Date: 20240716
  Serious: Yes (Disabling, Other)
  Sender: FDA-Public Use
  Company Number: CN-PFIZER INC-PV202400082285

PATIENT
  Age: 35 Year
  Sex: Male
  Weight: 87 kg

DRUGS (1)
  1. CYTARABINE [Suspect]
     Active Substance: CYTARABINE
     Indication: Acute myeloid leukaemia
     Dosage: 5.97 G, 2X/DAY
     Route: 041
     Dates: start: 20240531, end: 20240602

REACTIONS (3)
  - C-reactive protein increased [Recovering/Resolving]
  - Granulocyte count decreased [Recovering/Resolving]
  - Infection [Recovering/Resolving]

NARRATIVE: CASE EVENT DATE: 20240611
